FAERS Safety Report 8860342 (Version 2)
Quarter: 2012Q4

REPORT INFORMATION
  Report Type: 
  Country: US (occurrence: US)
  Receive Date: 20121025
  Receipt Date: 20121212
  Transmission Date: 20130627
  Serious: Yes (Death, Hospitalization)
  Sender: FDA-Public Use
  Company Number: US-PFIZER INC-2012265027

PATIENT
  Age: 68 Year
  Sex: Female

DRUGS (1)
  1. XALKORI [Suspect]
     Indication: NON-HODGKIN^S LYMPHOMA
     Dosage: 250 mg, 2x/day
     Dates: start: 20120110

REACTIONS (2)
  - Off label use [Fatal]
  - Pneumonia [Fatal]
